FAERS Safety Report 18916073 (Version 1)
Quarter: 2021Q1

REPORT INFORMATION
  Report Type: Spontaneous
  Country: CH (occurrence: CH)
  Receive Date: 20210219
  Receipt Date: 20210219
  Transmission Date: 20210420
  Serious: Yes (Life-Threatening, Hospitalization)
  Sender: FDA-Public Use
  Company Number: CH-MYLANLABS-2021M1010736

PATIENT
  Age: 30 Year
  Sex: Female

DRUGS (8)
  1. EPINEPHRINE. [Suspect]
     Active Substance: EPINEPHRINE
     Indication: CARDIAC ARREST
     Dosage: UNK (CUMULATIVE 6 MG)
     Route: 065
  2. AMIODARONE [Suspect]
     Active Substance: AMIODARONE
     Indication: ARRHYTHMIA
  3. AMIODARONE [Suspect]
     Active Substance: AMIODARONE
     Indication: CARDIAC ARREST
     Dosage: 300 MILLIGRAM
     Route: 065
  4. MAGNESIUM CHLORIDE. [Suspect]
     Active Substance: MAGNESIUM CHLORIDE
     Indication: ARRHYTHMIA
  5. MAGNESIUM CHLORIDE. [Suspect]
     Active Substance: MAGNESIUM CHLORIDE
     Indication: CARDIAC ARREST
     Dosage: 16 MILLIMOLE
     Route: 065
  6. EPINEPHRINE. [Suspect]
     Active Substance: EPINEPHRINE
     Indication: ARRHYTHMIA
  7. ATROPINE. [Suspect]
     Active Substance: ATROPINE
     Indication: CARDIAC ARREST
     Dosage: 1.5 MILLIGRAM
     Route: 065
  8. ATROPINE. [Suspect]
     Active Substance: ATROPINE
     Indication: ARRHYTHMIA

REACTIONS (1)
  - Drug ineffective [Unknown]
